FAERS Safety Report 18259471 (Version 1)
Quarter: 2020Q3

REPORT INFORMATION
  Report Type: Spontaneous
  Country: US (occurrence: US)
  Receive Date: 20200911
  Receipt Date: 20200911
  Transmission Date: 20201103
  Serious: Yes (Death)
  Sender: FDA-Public Use
  Company Number: US-FRESENIUS MEDICAL CARE RENAL THERAPIES GROUP-FMC-2009-001058

PATIENT
  Age: 82 Year
  Sex: Female
  Weight: 61 kg

DRUGS (3)
  1. DELFLEX WITH DEXTROSE 1.5% LOW MAGNESIUM LOW CALCIUM [Suspect]
     Active Substance: CALCIUM CHLORIDE\DEXTROSE\MAGNESIUM CHLORIDE\SODIUM CHLORIDE\SODIUM LACTATE
     Indication: END STAGE RENAL DISEASE
     Dosage: FILLS 5 ; FILL VOLUME 2,000 ML ; DWELL TIME1 HR 30 MIN; TOTAL VOLUME 10,000 ML ; LAST FILL VOLUME 0
     Route: 033
     Dates: start: 20200323
  2. DELFLEX WITH DEXTROSE 4.25% LOW MAGNESIUM LOW CALCIUM [Suspect]
     Active Substance: CALCIUM CHLORIDE\DEXTROSE\MAGNESIUM CHLORIDE\SODIUM CHLORIDE\SODIUM LACTATE
     Indication: END STAGE RENAL DISEASE
     Dosage: FILLS 5 ; FILL VOLUME 2,000 ML ; DWELL TIME1 HR 30 MIN; TOTAL VOLUME 10,000 ML ; LAST FILL VOLUME 0
     Route: 033
     Dates: start: 20200323
  3. DELFLEX WITH DEXTROSE 2.5% LOW MAGNESIUM LOW CALCIUM [Suspect]
     Active Substance: CALCIUM CHLORIDE\DEXTROSE\MAGNESIUM CHLORIDE\SODIUM CHLORIDE\SODIUM LACTATE
     Indication: END STAGE RENAL DISEASE
     Dosage: FILLS 5 ; FILL VOLUME 2,000 ML ; DWELL TIME1 HR 30 MIN; TOTAL VOLUME 10,000 ML ; LAST FILL VOLUME 0
     Route: 033
     Dates: start: 20200323

REACTIONS (1)
  - Myocardial infarction [Fatal]
